FAERS Safety Report 24277663 (Version 1)
Quarter: 2024Q3

REPORT INFORMATION
  Report Type: Spontaneous
  Country: US (occurrence: US)
  Receive Date: 20240903
  Receipt Date: 20240903
  Transmission Date: 20241017
  Serious: Yes (Other)
  Sender: BAUSCH AND LOMB
  Company Number: US-BAUSCH-BL-2024-013058

PATIENT
  Age: 67 Year
  Sex: Female

DRUGS (1)
  1. SILIQ [Suspect]
     Active Substance: BRODALUMAB
     Indication: Psoriasis
     Dosage: 210MG/1.5 ML, ONE INJECTION EVERY 2 WEEKS
     Route: 058
     Dates: start: 20240512

REACTIONS (2)
  - Polyarthritis [Not Recovered/Not Resolved]
  - Loss of personal independence in daily activities [Not Recovered/Not Resolved]

NARRATIVE: CASE EVENT DATE: 20240823
